FAERS Safety Report 11310539 (Version 5)
Quarter: 2016Q2

REPORT INFORMATION
  Report Type: Spontaneous
  Country: US (occurrence: US)
  Receive Date: 20150724
  Receipt Date: 20160405
  Transmission Date: 20160815
  Serious: Yes (Other)
  Sender: FDA-Public Use
  Company Number: US-ALLERGAN-1100446US

PATIENT
  Age: 67 Year
  Sex: Female
  Weight: 53.97 kg

DRUGS (5)
  1. FISH OIL [Concomitant]
     Active Substance: FISH OIL
     Indication: SUPPLEMENTATION THERAPY
  2. LATISSE [Suspect]
     Active Substance: BIMATOPROST
     Dosage: UNK, QD
     Route: 061
  3. CLONAZEPAM. [Concomitant]
     Active Substance: CLONAZEPAM
     Indication: TINNITUS
  4. LATISSE [Suspect]
     Active Substance: BIMATOPROST
     Indication: GROWTH OF EYELASHES
     Dosage: 1 GTT, QHS
     Route: 061
     Dates: start: 2009
  5. WELLBUTRIN [Concomitant]
     Active Substance: BUPROPION HYDROCHLORIDE

REACTIONS (9)
  - Cataract [Recovered/Resolved]
  - Eye pain [Not Recovered/Not Resolved]
  - Erythema of eyelid [Not Recovered/Not Resolved]
  - Wrong technique in product usage process [Unknown]
  - Coronary artery occlusion [Unknown]
  - Hip arthroplasty [Unknown]
  - Drug ineffective [Unknown]
  - Blister [Recovered/Resolved]
  - Madarosis [Recovered/Resolved]

NARRATIVE: CASE EVENT DATE: 2013
